FAERS Safety Report 23103890 (Version 1)
Quarter: 2023Q4

REPORT INFORMATION
  Report Type: Spontaneous
  Country: US (occurrence: None)
  Receive Date: 20231022
  Receipt Date: 20231022
  Transmission Date: 20240110
  Serious: Yes (Life-Threatening, Hospitalization)
  Sender: FDA-Public Use
  Company Number: None

PATIENT
  Age: 82 Year
  Sex: Male
  Weight: 70.7 kg

DRUGS (1)
  1. PIPERACILLIN AND TAZOBACTAM [Suspect]
     Active Substance: PIPERACILLIN SODIUM\TAZOBACTAM SODIUM
     Dosage: FREQUENCY : ONCE;?
     Route: 042
     Dates: start: 20220217, end: 20220217

REACTIONS (3)
  - Hypotension [None]
  - Anaphylactic reaction [None]
  - Erythema [None]

NARRATIVE: CASE EVENT DATE: 20230217
